FAERS Safety Report 24680029 (Version 1)
Quarter: 2024Q4

REPORT INFORMATION
  Report Type: Report from Study
  Country: US (occurrence: US)
  Receive Date: 20241129
  Receipt Date: 20241129
  Transmission Date: 20250115
  Serious: No
  Sender: BIOVITRUM
  Company Number: US-BIOVITRUM-2024-US-014552

PATIENT
  Age: 59 Year
  Sex: Female

DRUGS (3)
  1. KINERET [Suspect]
     Active Substance: ANAKINRA
     Indication: Systemic lupus erythematosus
     Dosage: DAILY (QD)
     Route: 058
  2. KINERET [Suspect]
     Active Substance: ANAKINRA
     Dosage: WEEKLY
     Route: 058
     Dates: start: 20241107
  3. KINERET [Suspect]
     Active Substance: ANAKINRA
     Dosage: AS ORDERED
     Route: 058

REACTIONS (2)
  - Diarrhoea [Unknown]
  - Intentional product misuse [Unknown]

NARRATIVE: CASE EVENT DATE: 20241107
